FAERS Safety Report 14309017 (Version 1)
Quarter: 2017Q4

REPORT INFORMATION
  Report Type: Spontaneous
  Country: US (occurrence: US)
  Receive Date: 20171220
  Receipt Date: 20171220
  Transmission Date: 20180321
  Serious: Yes (Hospitalization)
  Sender: FDA-Public Use
  Company Number: US-JNJFOC-20171222495

PATIENT
  Age: 52 Year
  Sex: Male
  Weight: 131 kg

DRUGS (13)
  1. SIMVASTATIN. [Concomitant]
     Active Substance: SIMVASTATIN
     Route: 065
  2. GLIPIZIDE. [Concomitant]
     Active Substance: GLIPIZIDE
     Route: 065
  3. LORAZEPAM. [Concomitant]
     Active Substance: LORAZEPAM
     Indication: ANXIETY
     Dosage: EVERY 6 HOURS AS NEEDED
     Route: 065
  4. DEXTROAMPHETAMINE. [Concomitant]
     Active Substance: DEXTROAMPHETAMINE
     Route: 065
  5. ASPIRIN. [Concomitant]
     Active Substance: ASPIRIN
     Route: 065
  6. METFORMIN [Concomitant]
     Active Substance: METFORMIN HYDROCHLORIDE
     Route: 065
  7. FUROSEMIDE. [Concomitant]
     Active Substance: FUROSEMIDE
     Route: 065
  8. LISINOPRIL. [Concomitant]
     Active Substance: LISINOPRIL
     Route: 065
  9. OXYCODONE [Concomitant]
     Active Substance: OXYCODONE
     Route: 065
  10. CANAGLIFLOZIN [Suspect]
     Active Substance: CANAGLIFLOZIN
     Indication: TYPE 2 DIABETES MELLITUS
     Route: 065
  11. QUETIAPINE. [Suspect]
     Active Substance: QUETIAPINE
     Indication: DEPRESSION
     Route: 065
  12. METOPROLOL TARTRATE. [Concomitant]
     Active Substance: METOPROLOL TARTRATE
     Route: 065
  13. QUETIAPINE. [Suspect]
     Active Substance: QUETIAPINE
     Indication: INSOMNIA
     Route: 065

REACTIONS (1)
  - Ketoacidosis [Recovered/Resolved]
